FAERS Safety Report 8144697-1 (Version None)
Quarter: 2012Q1

REPORT INFORMATION
  Report Type: 
  Country: None (occurrence: None)
  Receive Date: 20120217
  Receipt Date: 20120215
  Transmission Date: 20120608
  Serious: Yes (Other)
  Sender: FDA-Public Use
  Company Number: US-PFIZER INC-2012041043

PATIENT
  Sex: Male

DRUGS (1)
  1. CHANTIX [Suspect]
     Dosage: UNK

REACTIONS (6)
  - DISCOMFORT [None]
  - FATIGUE [None]
  - BLISTER [None]
  - MEMORY IMPAIRMENT [None]
  - STARING [None]
  - DISORIENTATION [None]
